FAERS Safety Report 8759924 (Version 1)
Quarter: 2012Q4

REPORT INFORMATION
  Report Type: 
  Country: US (occurrence: US)
  Receive Date: 20120829
  Receipt Date: 20120829
  Transmission Date: 20130627
  Serious: Yes (Hospitalization, Disabling)
  Sender: FDA-Public Use
  Company Number: US-GLAXOSMITHKLINE-A0743567A

PATIENT
  Age: 62 Year
  Sex: Male

DRUGS (1)
  1. AVANDIA [Suspect]
     Indication: TYPE 2 DIABETES MELLITUS
     Route: 048
     Dates: start: 20000322, end: 20060102

REACTIONS (6)
  - Cardiac failure congestive [Not Recovered/Not Resolved]
  - Cardiac disorder [Unknown]
  - Heart injury [Unknown]
  - Coronary artery bypass [Unknown]
  - Anxiety [Unknown]
  - Depression [Unknown]
